FAERS Safety Report 7934596-X (Version None)
Quarter: 2011Q4

REPORT INFORMATION
  Report Type: 
  Country: None (occurrence: None)
  Receive Date: 20111122
  Receipt Date: 20110921
  Transmission Date: 20120403
  Serious: No
  Sender: FDA-Public Use
  Company Number: US-BAYER-2011-091335

PATIENT
  Age: 76 Year
  Sex: Female
  Weight: 73 kg

DRUGS (2)
  1. THYROID TAB [Concomitant]
     Indication: THYROID DISORDER
     Dosage: UNK UNK, QD
  2. ALEVE (CAPLET) [Suspect]
     Dosage: 1 DF, BID
     Dates: start: 20110907

REACTIONS (1)
  - NO ADVERSE EVENT [None]
